FAERS Safety Report 7360990-4 (Version None)
Quarter: 2011Q1

REPORT INFORMATION
  Report Type: 
  Country: None (occurrence: None)
  Receive Date: 20110318
  Receipt Date: 20110310
  Transmission Date: 20110831
  Serious: Yes (Hospitalization)
  Sender: FDA-Public Use
  Company Number: PHHY2011TW21489

PATIENT
  Sex: Female

DRUGS (1)
  1. ACLASTA/ZOLEDRONATE [Suspect]
     Dosage: 5 MG
     Route: 042
     Dates: start: 20091231

REACTIONS (6)
  - SWELLING [None]
  - WOUND INFECTION STAPHYLOCOCCAL [None]
  - ARTHRALGIA [None]
  - OSTEOMYELITIS [None]
  - BURNING SENSATION [None]
  - ERYTHEMA [None]
